FAERS Safety Report 9973455 (Version 1)
Quarter: 2014Q1

REPORT INFORMATION
  Report Type: Spontaneous
  Country: US (occurrence: None)
  Receive Date: 20140128
  Receipt Date: 20140128
  Transmission Date: 20141002
  Serious: Yes (Hospitalization)
  Sender: FDA-Public Use
  Company Number: A-US2012-75860

PATIENT
  Age: 61 Year
  Sex: Female

DRUGS (5)
  1. TRACLEER [Suspect]
     Indication: PULMONARY ARTERIAL HYPERTENSION
     Dosage: ?
     Route: 048
  2. NORVASC (AMLODIPINE BESILATE) [Concomitant]
  3. LASIX (FUROSEMIDE SODIUM) [Concomitant]
  4. DIGOXINE (DIGOXIN) [Concomitant]
  5. TENORMIN (ATENOLOL) [Concomitant]

REACTIONS (1)
  - Abdominal pain [None]
